FAERS Safety Report 15041106 (Version 2)
Quarter: 2018Q3

REPORT INFORMATION
  Report Type: Report from Study
  Country: US (occurrence: US)
  Receive Date: 20180621
  Receipt Date: 20180730
  Transmission Date: 20181010
  Serious: No
  Sender: FDA-Public Use
  Company Number: PHEH2018US024129

PATIENT
  Age: 35 Year
  Sex: Female
  Weight: 140 kg

DRUGS (1)
  1. EXTAVIA [Suspect]
     Active Substance: INTERFERON BETA-1B
     Indication: PRODUCT USED FOR UNKNOWN INDICATION
     Dosage: 0.3 MG, QOD
     Route: 058

REACTIONS (2)
  - Underdose [Unknown]
  - Device leakage [Unknown]

NARRATIVE: CASE EVENT DATE: 20180614
